FAERS Safety Report 7531550-7 (Version None)
Quarter: 2011Q2

REPORT INFORMATION
  Report Type: 
  Country: None (occurrence: None)
  Receive Date: 20110606
  Receipt Date: 20110606
  Transmission Date: 20111010
  Serious: No
  Sender: FDA-Public Use
  Company Number: None

PATIENT
  Age: 60 Year
  Sex: Female

DRUGS (8)
  1. AUGMENTIN XR [Suspect]
     Indication: LYME DISEASE
     Dosage: 1000 MG BID
     Dates: start: 20060329, end: 20060405
  2. KETEK [Suspect]
     Dates: start: 20060122, end: 20060301
  3. VITAMIN B 6 AND B 12 [Concomitant]
  4. LEVAQUIN [Suspect]
     Indication: LYME DISEASE
     Dates: start: 20060329, end: 20060405
  5. MULTI-VITAMIN [Concomitant]
  6. COENZYME Q10 [Concomitant]
  7. PREMPRO [Concomitant]
  8. NEXIUM [Concomitant]

REACTIONS (4)
  - CHROMATURIA [None]
  - LIVER DISORDER [None]
  - PRURITUS [None]
  - YELLOW SKIN [None]
